FAERS Safety Report 14984414 (Version 1)
Quarter: 2018Q2

REPORT INFORMATION
  Report Type: Report from Study
  Country: US (occurrence: US)
  Receive Date: 20180607
  Receipt Date: 20180607
  Transmission Date: 20180711
  Serious: Yes (Death)
  Sender: FDA-Public Use
  Company Number: US-MYLANLABS-2018M1037892

PATIENT
  Age: 77 Year
  Sex: Male

DRUGS (8)
  1. DOXORUBICIN [Suspect]
     Active Substance: DOXORUBICIN
     Indication: DOUBLE HIT LYMPHOMA
     Dosage: AS PART OF R-EPOCH REGIMEN; THREE CYCLES
     Route: 065
  2. CYCLOPHOSPHAMIDE. [Suspect]
     Active Substance: CYCLOPHOSPHAMIDE
     Indication: DOUBLE HIT LYMPHOMA
     Dosage: AS PART OF R-EPOCH REGIMEN; THREE CYCLES
     Route: 065
  3. ETOPOSIDE. [Suspect]
     Active Substance: ETOPOSIDE
     Indication: DOUBLE HIT LYMPHOMA
     Dosage: AS PART OF R-EPOCH REGIMEN; THREE CYCLES
     Route: 065
  4. RITUXIMAB. [Suspect]
     Active Substance: RITUXIMAB
     Indication: DOUBLE HIT LYMPHOMA
     Dosage: AS PART OF R-EPOCH REGIMEN; THREE CYCLES
     Route: 065
  5. VINCRISTINE [Suspect]
     Active Substance: VINCRISTINE
     Indication: DOUBLE HIT LYMPHOMA
     Dosage: AS PART OF R-EPOCH REGIMEN; THREE CYCLES
     Route: 065
  6. METHOTREXATE. [Suspect]
     Active Substance: METHOTREXATE
     Indication: PROPHYLAXIS
     Dosage: TWO CYCLES
     Route: 037
  7. METHOTREXATE. [Suspect]
     Active Substance: METHOTREXATE
     Indication: DOUBLE HIT LYMPHOMA
  8. PREDNISOLONE. [Suspect]
     Active Substance: PREDNISOLONE
     Indication: DOUBLE HIT LYMPHOMA
     Dosage: AS PART OF R-EPOCH REGIMEN; THREE CYCLES
     Route: 065

REACTIONS (2)
  - Septic shock [Fatal]
  - Pyelonephritis [Fatal]
